FAERS Safety Report 8714600 (Version 3)
Quarter: 2014Q4

REPORT INFORMATION
  Report Type: Spontaneous
  Country: US (occurrence: US)
  Receive Date: 20120809
  Receipt Date: 20141106
  Transmission Date: 20150529
  Serious: Yes (Hospitalization, Other)
  Sender: FDA-Public Use
  Company Number: US-BAYER-2012-078796

PATIENT
  Age: 21 Year
  Sex: Female
  Weight: 63.49 kg

DRUGS (7)
  1. ROSULA [Concomitant]
     Active Substance: SULFACETAMIDE SODIUM\SULFUR
  2. YASMIN [Suspect]
     Active Substance: DROSPIRENONE\ETHINYL ESTRADIOL
     Indication: ACNE
     Dosage: UNK
     Dates: start: 20050204, end: 20050529
  3. POTASSIUM [Concomitant]
     Active Substance: POTASSIUM
     Indication: SUPPLEMENTATION THERAPY
  4. RETIN-A [Concomitant]
     Active Substance: TRETINOIN
     Dosage: UNK
     Dates: start: 20050414
  5. LEVAQUIN [Concomitant]
     Active Substance: LEVOFLOXACIN
     Dosage: UNK
     Dates: start: 20050519
  6. FINACEA [Concomitant]
     Active Substance: AZELAIC ACID
  7. AVELOX [Concomitant]
     Active Substance: MOXIFLOXACIN HYDROCHLORIDE

REACTIONS (12)
  - Bipolar disorder [None]
  - Pulmonary embolism [None]
  - Emotional distress [None]
  - Anxiety [None]
  - Deep vein thrombosis [None]
  - Injury [None]
  - Thrombosis [None]
  - Mental disorder [None]
  - Depression [None]
  - Complication of pregnancy [None]
  - General physical health deterioration [None]
  - Pain [None]

NARRATIVE: CASE EVENT DATE: 200505
